FAERS Safety Report 8622183-X (Version None)
Quarter: 2012Q3

REPORT INFORMATION
  Report Type: 
  Country: None (occurrence: None)
  Receive Date: 20120826
  Receipt Date: 20120813
  Transmission Date: 20120928
  Serious: Yes (Hospitalization)
  Sender: FDA-Public Use
  Company Number: FR-BRISTOL-MYERS SQUIBB COMPANY-16862021

PATIENT
  Age: 36 Year
  Sex: Male

DRUGS (4)
  1. ABILIFY [Suspect]
     Dosage: REDUCED TO 15 MG FROM 30JUN2012
     Dates: start: 20120629
  2. TERCIAN [Suspect]
     Dosage: 1DF: 50 MG/5 ML INJECTABLE SOLUTION IN AMPOULE
  3. FRAGMIN [Suspect]
     Dosage: 5000 UI ANTI XA/0.2 ML, SOLUTION FOR INJECTION IN PREFILLED SYRINGE
  4. LORAZEPAM [Suspect]
     Dosage: SCORED TABLET

REACTIONS (1)
  - HAEMOLYTIC ANAEMIA [None]
